FAERS Safety Report 8581919 (Version 7)
Quarter: 2013Q1

REPORT INFORMATION
  Report Type: Spontaneous
  Country: US (occurrence: US)
  Receive Date: 20120528
  Receipt Date: 20130116
  Transmission Date: 20140127
  Serious: Yes (Hospitalization, Other)
  Sender: FDA-Public Use
  Company Number: US-PFIZER INC-2012127264

PATIENT
  Age: 65 Year
  Sex: Female
  Weight: 74.83 kg

DRUGS (13)
  1. CELEBREX [Suspect]
     Indication: RHEUMATOID ARTHRITIS
     Dosage: 200 MG, 3X/DAY
     Route: 048
  2. CELEBREX [Suspect]
     Dosage: 200 MG, 1X/DAY
  3. PAXIL CR [Concomitant]
     Indication: PANIC ATTACK
     Dosage: UNK
  4. PAXIL CR [Concomitant]
     Indication: DEPRESSION
  5. METHOTREXATE [Concomitant]
     Indication: RHEUMATOID ARTHRITIS
     Dosage: UNK
  6. LANSOPRAZOLE [Concomitant]
     Indication: ABDOMINAL PAIN UPPER
     Dosage: UNK
  7. ALPRAZOLAM [Concomitant]
     Indication: INSOMNIA
     Dosage: UNK
  8. PRAVASTATIN [Concomitant]
     Indication: BLOOD CHOLESTEROL INCREASED
     Dosage: 20 MG, 1X/DAY
  9. ACTEMRA [Concomitant]
     Indication: RHEUMATOID ARTHRITIS
     Dosage: UNK
     Route: 042
  10. MORPHINE [Concomitant]
     Indication: PAIN
     Dosage: 15 MG, 2X/DAY
  11. VALTREX [Concomitant]
     Indication: HERPES ZOSTER
     Dosage: 1 G, 1X/DAY
  12. ASPIRIN [Concomitant]
     Dosage: 325 MG, 1X/DAY
  13. BENAZEPRIL [Concomitant]

REACTIONS (3)
  - Cerebrovascular accident [Recovered/Resolved]
  - Paralysis [Unknown]
  - Atrial septal defect [Unknown]
